FAERS Safety Report 19044498 (Version 1)
Quarter: 2021Q1

REPORT INFORMATION
  Report Type: Spontaneous
  Country: US (occurrence: US)
  Receive Date: 20210323
  Receipt Date: 20210323
  Transmission Date: 20210420
  Serious: Yes (Life-Threatening, Hospitalization)
  Sender: FDA-Public Use
  Company Number: US-MYLANLABS-2021M1017613

PATIENT
  Age: 59 Year
  Sex: Female

DRUGS (1)
  1. OCTREOTIDE. [Suspect]
     Active Substance: OCTREOTIDE
     Indication: CARCINOID CRISIS
     Dosage: 500 MICROGRAM, QH

REACTIONS (3)
  - Arteriospasm coronary [Recovered/Resolved]
  - Myocardial reperfusion injury [Recovered/Resolved]
  - Cardiogenic shock [Recovered/Resolved]
